FAERS Safety Report 6902097-3 (Version None)
Quarter: 2010Q3

REPORT INFORMATION
  Report Type: 
  Country: None (occurrence: None)
  Receive Date: 20100803
  Receipt Date: 20080418
  Transmission Date: 20110219
  Serious: No
  Sender: FDA-Public Use
  Company Number: US-PFIZER INC-2008035379

PATIENT
  Sex: Female
  Weight: 58.636 kg

DRUGS (5)
  1. LYRICA [Suspect]
     Indication: FIBROMYALGIA
     Dosage: 75 MG BID EVERY DAY TDD:75 MG
     Dates: start: 20080417, end: 20080417
  2. LYRICA [Suspect]
     Indication: INTERVERTEBRAL DISC PROTRUSION
  3. AMBIEN [Concomitant]
  4. COUGH AND COLD PREPARATIONS [Concomitant]
  5. ESGIC [Concomitant]
     Indication: MIGRAINE

REACTIONS (3)
  - DISORIENTATION [None]
  - HEADACHE [None]
  - MIGRAINE [None]
